FAERS Safety Report 5506279-7 (Version None)
Quarter: 2007Q4

REPORT INFORMATION
  Report Type: 
  Country: None (occurrence: None)
  Receive Date: 20071105
  Receipt Date: 20071025
  Transmission Date: 20080405
  Serious: Yes (Hospitalization)
  Sender: FDA-Public Use
  Company Number: DK-JNJFOC-20071006682

PATIENT
  Age: 57 Year
  Sex: Male

DRUGS (3)
  1. REMICADE [Suspect]
     Indication: COLITIS ULCERATIVE
  2. SOLU-MEDROL [Concomitant]
     Indication: COLITIS ULCERATIVE
     Route: 042
  3. PREDNISOLONE [Concomitant]
     Indication: COLITIS ULCERATIVE
     Dosage: ^AFTER FORM CHANGING UP TO 80 MG^
     Route: 048

REACTIONS (1)
  - PNEUMOCYSTIS JIROVECI INFECTION [None]
